FAERS Safety Report 9720172 (Version 2)
Quarter: 2014Q1

REPORT INFORMATION
  Report Type: Report from Study
  Country: DE (occurrence: DE)
  Receive Date: 20131129
  Receipt Date: 20140114
  Transmission Date: 20141002
  Serious: Yes (Hospitalization)
  Sender: FDA-Public Use
  Company Number: DE-ROCHE-1311429

PATIENT
  Sex: Male

DRUGS (1)
  1. TRASTUZUMAB [Suspect]
     Indication: GASTRIC CANCER
     Route: 065

REACTIONS (1)
  - Subileus [Recovered/Resolved with Sequelae]
